FAERS Safety Report 9917038 (Version 1)
Quarter: 2014Q1

REPORT INFORMATION
  Report Type: Spontaneous
  Country: GB (occurrence: GB)
  Receive Date: 20140221
  Receipt Date: 20140221
  Transmission Date: 20141002
  Serious: Yes (Life-Threatening, Hospitalization)
  Sender: FDA-Public Use
  Company Number: GB-GLAXOSMITHKLINE-B0970024A

PATIENT
  Age: 79 Year
  Sex: Female

DRUGS (9)
  1. REVOLADE [Suspect]
     Indication: SYSTEMIC LUPUS ERYTHEMATOSUS
     Dosage: 50MG PER DAY
     Route: 048
     Dates: end: 20140202
  2. ADCAL-D3 [Concomitant]
  3. BISOPROLOL [Concomitant]
  4. CHLORPHENAMINE [Concomitant]
  5. DIGOXIN [Concomitant]
  6. LANSOPRAZOLE [Concomitant]
  7. LISINOPRIL [Concomitant]
  8. PREDNISOLONE ACETATE [Concomitant]
  9. STRONTIUM CHLORIDE [Concomitant]

REACTIONS (3)
  - Angioedema [Recovering/Resolving]
  - Hypersensitivity [Unknown]
  - Rash generalised [Recovering/Resolving]
